FAERS Safety Report 24895680 (Version 1)
Quarter: 2025Q1

REPORT INFORMATION
  Report Type: Spontaneous
  Country: US (occurrence: US)
  Receive Date: 20250128
  Receipt Date: 20250128
  Transmission Date: 20250409
  Serious: No
  Sender: PFIZER
  Company Number: US-PFIZER INC-202500017100

PATIENT
  Age: 76 Year
  Sex: Female

DRUGS (1)
  1. ALDACTONE [Suspect]
     Active Substance: SPIRONOLACTONE

REACTIONS (5)
  - Illness [Unknown]
  - Poor quality product administered [Unknown]
  - Product physical issue [Unknown]
  - Product dosage form issue [Unknown]
  - Product colour issue [Unknown]
